FAERS Safety Report 6983231-6 (Version None)
Quarter: 2010Q3

REPORT INFORMATION
  Report Type: 
  Country: None (occurrence: None)
  Receive Date: 20100914
  Receipt Date: 20100706
  Transmission Date: 20110219
  Serious: Yes (Other)
  Sender: FDA-Public Use
  Company Number: US-PFIZER INC-2010084905

PATIENT
  Sex: Female
  Weight: 90.703 kg

DRUGS (7)
  1. LYRICA [Suspect]
     Indication: FIBROMYALGIA
     Dosage: 150 MG, DAILY
     Route: 048
     Dates: start: 20091222
  2. LYRICA [Suspect]
     Indication: MIGRAINE
  3. DEPAKOTE [Concomitant]
     Indication: BIPOLAR DISORDER
     Dosage: 1000 MG, UNK
  4. AMBIEN [Concomitant]
     Indication: SLEEP DISORDER
     Dosage: UNK, AS NEEDED
  5. LEXAPRO [Concomitant]
     Indication: DEPRESSION
     Dosage: UNK
  6. ESTRADIOL ACETATE [Concomitant]
     Dosage: UNK
  7. TESTOSTERONE [Concomitant]
     Dosage: UNK

REACTIONS (2)
  - FLUID RETENTION [None]
  - OEDEMA PERIPHERAL [None]
